FAERS Safety Report 20948458 (Version 2)
Quarter: 2022Q3

REPORT INFORMATION
  Report Type: Spontaneous
  Country: JP (occurrence: JP)
  Receive Date: 20220612
  Receipt Date: 20220704
  Transmission Date: 20221027
  Serious: Yes (Death, Hospitalization)
  Sender: FDA-Public Use
  Company Number: JP-JNJFOC-20220608402

PATIENT
  Age: 9 Decade
  Sex: Male

DRUGS (1)
  1. ERLEADA [Suspect]
     Active Substance: APALUTAMIDE
     Indication: Prostate cancer metastatic
     Route: 048
     Dates: end: 2022

REACTIONS (1)
  - Liver disorder [Fatal]

NARRATIVE: CASE EVENT DATE: 20220501
